FAERS Safety Report 17046677 (Version 2)
Quarter: 2019Q4

REPORT INFORMATION
  Report Type: Spontaneous
  Country: US (occurrence: US)
  Receive Date: 20191119
  Receipt Date: 20191122
  Transmission Date: 20200122
  Serious: No
  Sender: FDA-Public Use
  Company Number: US-009507513-1911USA000320

PATIENT
  Age: 70 Year
  Sex: Female

DRUGS (1)
  1. INTRON A [Suspect]
     Active Substance: INTERFERON ALFA-2B
     Indication: CUTANEOUS T-CELL LYMPHOMA
     Dosage: 1 MILLION UNITS 3 X PER WEEK, 18 U MULTIPLE DOSE VIALS (MDV), STRENGTH: 6 MU/ML
     Route: 058
     Dates: start: 20191008

REACTIONS (2)
  - Malaise [Unknown]
  - Influenza like illness [Unknown]

NARRATIVE: CASE EVENT DATE: 20191030
